FAERS Safety Report 8487374-X (Version None)
Quarter: 2012Q3

REPORT INFORMATION
  Report Type: 
  Country: None (occurrence: None)
  Receive Date: 20120705
  Receipt Date: 20120622
  Transmission Date: 20120928
  Serious: Yes (Hospitalization)
  Sender: FDA-Public Use
  Company Number: US-ELI_LILLY_AND_COMPANY-US201206007489

PATIENT
  Sex: Male

DRUGS (1)
  1. PROZAC [Suspect]

REACTIONS (3)
  - AGITATION [None]
  - CEREBROVASCULAR ACCIDENT [None]
  - DELIRIUM [None]
